FAERS Safety Report 9150997 (Version 1)
Quarter: 2013Q1

REPORT INFORMATION
  Report Type: Spontaneous
  Country: US (occurrence: US)
  Receive Date: 20130308
  Receipt Date: 20130308
  Transmission Date: 20140127
  Serious: No
  Sender: FDA-Public Use
  Company Number: US-GLAXOSMITHKLINE-A1005715A

PATIENT
  Age: 25 Year
  Sex: Female

DRUGS (1)
  1. OLUX-E FOAM 0.05% [Suspect]
     Indication: DERMATOSIS
     Dosage: 1APP TWICE PER DAY
     Route: 061
     Dates: start: 20121204, end: 20121212

REACTIONS (3)
  - Alopecia [Unknown]
  - Dermatitis [Unknown]
  - Pruritus [Not Recovered/Not Resolved]
